FAERS Safety Report 12915025 (Version 1)
Quarter: 2016Q4

REPORT INFORMATION
  Report Type: Spontaneous
  Country: US (occurrence: US)
  Receive Date: 20161106
  Receipt Date: 20161106
  Transmission Date: 20170207
  Serious: No
  Sender: FDA-Public Use
  Company Number: US-RELYPSA-RLY2016002366

PATIENT
  Sex: Male

DRUGS (11)
  1. DOXYCYCLINE HYCLATE                /00055703/ [Concomitant]
  2. PREDNISOLONE. [Concomitant]
     Active Substance: PREDNISOLONE
  3. SODIUM BICARBONATE. [Concomitant]
     Active Substance: SODIUM BICARBONATE
  4. AMLODIPINE [Concomitant]
     Active Substance: AMLODIPINE BESYLATE
  5. LANTUS [Concomitant]
     Active Substance: INSULIN GLARGINE
  6. FUROSEMIDE. [Concomitant]
     Active Substance: FUROSEMIDE
  7. VELTASSA [Suspect]
     Active Substance: PATIROMER
     Indication: HYPERKALAEMIA
     Dosage: 8.4 G, QOD
     Route: 048
     Dates: start: 201606
  8. TRAMADOL. [Concomitant]
     Active Substance: TRAMADOL
  9. LOPERAMIDE [Concomitant]
     Active Substance: LOPERAMIDE
  10. TEMAZEPAM. [Concomitant]
     Active Substance: TEMAZEPAM
  11. DOXERCALCIFEROL. [Concomitant]
     Active Substance: DOXERCALCIFEROL

REACTIONS (2)
  - Abdominal discomfort [Unknown]
  - Off label use [Unknown]

NARRATIVE: CASE EVENT DATE: 2016
